FAERS Safety Report 23072229 (Version 3)
Quarter: 2023Q4

REPORT INFORMATION
  Report Type: Spontaneous
  Country: PL (occurrence: PL)
  Receive Date: 20231017
  Receipt Date: 20231229
  Transmission Date: 20240109
  Serious: Yes (Other)
  Sender: FDA-Public Use
  Company Number: PL-CELLTRION INC.-2023PL019705

PATIENT

DRUGS (6)
  1. RITUXIMAB [Suspect]
     Active Substance: RITUXIMAB
     Indication: Granulomatosis with polyangiitis
     Dosage: 375 MG/M2
     Route: 042
  2. RITUXIMAB [Suspect]
     Active Substance: RITUXIMAB
     Dosage: 723.75 MG
     Route: 065
  3. MYCOPHENOLATE MOFETIL [Suspect]
     Active Substance: MYCOPHENOLATE MOFETIL
     Indication: Granulomatosis with polyangiitis
     Dosage: 1 G, QD
     Route: 065
  4. PREDNISONE [Concomitant]
     Active Substance: PREDNISONE
  5. CYCLOPHOSPHAMIDE [Concomitant]
     Active Substance: CYCLOPHOSPHAMIDE
     Dosage: 11 CYCLE
  6. AZATHIOPRINE [Concomitant]
     Active Substance: AZATHIOPRINE

REACTIONS (3)
  - Pneumothorax [Unknown]
  - Abdominal pain [Unknown]
  - Nausea [Unknown]
